FAERS Safety Report 10272514 (Version 1)
Quarter: 2014Q2

REPORT INFORMATION
  Report Type: Spontaneous
  Country: DE (occurrence: None)
  Receive Date: 20140630
  Receipt Date: 20140630
  Transmission Date: 20141212
  Serious: Yes (Death)
  Sender: FDA-Public Use
  Company Number: IPC201406-000311

PATIENT
  Age: 86 Year
  Sex: Male

DRUGS (9)
  1. FUROSEMIDE (FUROSEMIDE) (FUROSEMIDE) [Suspect]
  2. VALPROIC ACID (VALPROIC ACID) [Suspect]
     Indication: PARTIAL SEIZURES
  3. CLONAZEPAM (CLONAZEPAM) (CLONAZEPAM) [Suspect]
  4. LEVODOPA [Suspect]
  5. OMEPRAZOLE (OMEPRAZOLE) (OMEPRAZOLE) [Suspect]
  6. CLOPIDOGREL (CLOPIDOGREL) (CLOPIDOGREL) [Concomitant]
  7. CIPROFLOXACINE [Suspect]
  8. DICLOFENAC (DICLOFENAC) [Suspect]
  9. HEPARIN (HEPARIN) [Suspect]

REACTIONS (2)
  - Hepatic failure [None]
  - Hepatotoxicity [None]
